FAERS Safety Report 17853575 (Version 1)
Quarter: 2020Q2

REPORT INFORMATION
  Report Type: Spontaneous
  Country: US (occurrence: US)
  Receive Date: 20200602
  Receipt Date: 20200602
  Transmission Date: 20200714
  Serious: No
  Sender: FDA-Public Use
  Company Number: US-ARBOR PHARMACEUTICALS, LLC-US-2019ARB001323

PATIENT
  Age: 65 Year
  Sex: Female

DRUGS (3)
  1. HORIZANT [Suspect]
     Active Substance: GABAPENTIN ENACARBIL
     Indication: RESTLESS LEGS SYNDROME
     Dosage: 300 MG, QD
     Route: 048
     Dates: start: 20190826
  2. HORIZANT [Suspect]
     Active Substance: GABAPENTIN ENACARBIL
     Dosage: UNK
     Dates: start: 2015
  3. OXYCODONE [Concomitant]
     Active Substance: OXYCODONE
     Indication: RESTLESS LEGS SYNDROME
     Dosage: UNK

REACTIONS (8)
  - Abnormal dreams [Unknown]
  - Hypoaesthesia [Recovered/Resolved]
  - Paraesthesia [Unknown]
  - Feeling abnormal [Unknown]
  - Somnolence [Unknown]
  - Drug ineffective [Unknown]
  - Dizziness [Unknown]
  - Fatigue [Unknown]

NARRATIVE: CASE EVENT DATE: 20190826
